FAERS Safety Report 6740238-1 (Version None)
Quarter: 2010Q2

REPORT INFORMATION
  Report Type: 
  Country: None (occurrence: None)
  Receive Date: 20100525
  Receipt Date: 20100520
  Transmission Date: 20101027
  Serious: Yes (Hospitalization)
  Sender: FDA-Public Use
  Company Number: B0657083A

PATIENT
  Sex: Male

DRUGS (2)
  1. AVAMYS [Suspect]
     Indication: RHINITIS
     Route: 045
     Dates: start: 20100201
  2. XYZAL [Concomitant]

REACTIONS (2)
  - ASTHMA [None]
  - DYSPNOEA [None]
